FAERS Safety Report 5102831-1 (Version None)
Quarter: 2006Q3

REPORT INFORMATION
  Report Type: 
  Country: None (occurrence: None)
  Receive Date: 20060907
  Receipt Date: 20060906
  Transmission Date: 20061208
  Serious: Yes (Hospitalization)
  Sender: FDA-Public Use
  Company Number: 226388

PATIENT
  Sex: Male

DRUGS (3)
  1. AVASTIN [Suspect]
     Indication: COLORECTAL CANCER
     Dosage: 720 MG, QD, INTRAVENOUS
     Route: 042
     Dates: start: 20060509
  2. CAPECITABINE(CAPECITABINE) [Suspect]
     Indication: COLORECTAL CANCER
     Dosage: 4600 MG, QD, ORAL
     Route: 048
     Dates: start: 20060509
  3. OXALIPLATIN [Suspect]
     Indication: COLORECTAL CANCER
     Dosage: 291 MG, QD, INTRAVENOUS
     Route: 042
     Dates: start: 20060509

REACTIONS (1)
  - PYREXIA [None]
